FAERS Safety Report 8073297-7 (Version None)
Quarter: 2011Q4

REPORT INFORMATION
  Report Type: 
  Country: None (occurrence: None)
  Receive Date: 20111221
  Receipt Date: 20110822
  Transmission Date: 20120403
  Serious: Yes (Hospitalization)
  Sender: FDA-Public Use
  Company Number: PHEH2010US01399

PATIENT
  Age: 26 Year
  Sex: Male
  Weight: 67.7 kg

DRUGS (3)
  1. DESFERAL [Concomitant]
  2. EXJADE [Suspect]
     Indication: SICKLE CELL ANAEMIA
     Dosage: 1000 MG, DAILY, ORAL, 500 MG, BID, ORAL, 1500 MG, DAILY, ORAL,
     Route: 048
     Dates: start: 20091216
  3. EXJADE [Suspect]
     Indication: SICKLE CELL ANAEMIA
     Dosage: 1000 MG, DAILY, ORAL, 500 MG, BID, ORAL, 1500 MG, DAILY, ORAL,
     Route: 048
     Dates: start: 20091201

REACTIONS (4)
  - SICKLE CELL ANAEMIA WITH CRISIS [None]
  - HEADACHE [None]
  - FEELING JITTERY [None]
  - RENAL FAILURE [None]
